FAERS Safety Report 4273318-3 (Version None)
Quarter: 2004Q1

REPORT INFORMATION
  Report Type: 
  Country: None (occurrence: None)
  Receive Date: 20040114
  Receipt Date: 20040108
  Transmission Date: 20041129
  Serious: Yes (Life-Threatening)
  Sender: FDA-Public Use
  Company Number: OMPQ-NO-0401L-0024 (0)

PATIENT
  Age: 68 Year
  Sex: Female

DRUGS (1)
  1. OMNIPAQUE 140 [Suspect]
     Indication: ANGINA PECTORIS
     Dosage: 180 ML, SINGLE DOSE, I.A.
     Route: 013

REACTIONS (24)
  - AGNOSIA [None]
  - AMNESIA [None]
  - ANXIETY [None]
  - APHASIA [None]
  - BLINDNESS [None]
  - BLINDNESS CORTICAL [None]
  - BLOOD BRAIN BARRIER DEFECT [None]
  - CARDIAC ARREST [None]
  - COGNITIVE DISORDER [None]
  - COMPUTERISED TOMOGRAM ABNORMAL [None]
  - CONFABULATION [None]
  - CONFUSIONAL STATE [None]
  - DYSGRAPHIA [None]
  - DYSPHASIA [None]
  - ELECTROENCEPHALOGRAM ABNORMAL [None]
  - HALLUCINATION, VISUAL [None]
  - HEADACHE [None]
  - HEMIPARESIS [None]
  - IATROGENIC INJURY [None]
  - NEUROLOGICAL EXAMINATION ABNORMAL [None]
  - NUCLEAR MAGNETIC RESONANCE IMAGING BRAIN ABNORMAL [None]
  - NYSTAGMUS [None]
  - RETROGRADE AMNESIA [None]
  - VISION BLURRED [None]
